FAERS Safety Report 25318668 (Version 2)
Quarter: 2025Q2

REPORT INFORMATION
  Report Type: Spontaneous
  Country: JP (occurrence: JP)
  Receive Date: 20250515
  Receipt Date: 20250603
  Transmission Date: 20250716
  Serious: Yes (Death)
  Sender: DAIICHI
  Company Number: JP-DSJP-DS-2025-138586-JP

PATIENT
  Age: 6 Decade
  Sex: Female

DRUGS (1)
  1. DATROWAY [Suspect]
     Active Substance: DATOPOTAMAB DERUXTECAN-DLNK
     Indication: Hormone receptor positive HER2 negative breast cancer
     Dosage: 6 MG/KG, ONCE EVERY 3 WK
     Route: 041
     Dates: start: 20250418, end: 20250509

REACTIONS (2)
  - Disease progression [Fatal]
  - Pyrexia [Recovered/Resolved]

NARRATIVE: CASE EVENT DATE: 20250420
